FAERS Safety Report 25962731 (Version 1)
Quarter: 2025Q4

REPORT INFORMATION
  Report Type: Spontaneous
  Country: EU (occurrence: EU)
  Receive Date: 20251027
  Receipt Date: 20251027
  Transmission Date: 20260118
  Serious: Yes (Other)
  Sender: ANI
  Company Number: EU-ANIPHARMA-2025-DE-000066

PATIENT
  Age: 77 Year
  Sex: Male
  Weight: 79 kg

DRUGS (2)
  1. CANDESARTAN CILEXETIL [Suspect]
     Active Substance: CANDESARTAN CILEXETIL
     Indication: Hypertension
     Dosage: 32 MILLIGRAM; 8 MILLIGRAM IN 1 DAY
  2. LERCANIDIPINE [Suspect]
     Active Substance: LERCANIDIPINE
     Dosage: 8 MG IN 1 DAY; 10 MG IN 1 DAY; 5 MG IN; 10 MG IN; 10 MG IN 1 DAY
     Dates: start: 2021

REACTIONS (6)
  - Prostate cancer [Unknown]
  - Metastases to bone [Unknown]
  - Prostate cancer metastatic [Unknown]
  - Prostate cancer recurrent [Unknown]
  - Prostatic specific antigen increased [Unknown]
  - Drug ineffective [Unknown]

NARRATIVE: CASE EVENT DATE: 20240101
